FAERS Safety Report 7522614-2 (Version None)
Quarter: 2011Q2

REPORT INFORMATION
  Report Type: 
  Country: None (occurrence: None)
  Receive Date: 20110603
  Receipt Date: 20110523
  Transmission Date: 20111010
  Serious: Yes (Death, Other)
  Sender: FDA-Public Use
  Company Number: GB-NOVOPROD-328639

PATIENT
  Age: 58 Year
  Sex: Male

DRUGS (1)
  1. ZINC CHLORIDE [Suspect]
     Indication: HYPERGLYCAEMIA
     Dosage: 6 IU, UNK 1/1HOURS
     Route: 042
     Dates: start: 20101119, end: 20101122

REACTIONS (3)
  - HYPERGLYCAEMIA [None]
  - DEATH [None]
  - PRODUCT QUALITY ISSUE [None]
